FAERS Safety Report 17807333 (Version 1)
Quarter: 2020Q2

REPORT INFORMATION
  Report Type: Spontaneous
  Country: US (occurrence: US)
  Receive Date: 20200520
  Receipt Date: 20200520
  Transmission Date: 20200714
  Serious: Yes (Hospitalization)
  Sender: FDA-Public Use
  Company Number: None

PATIENT
  Age: 86 Year
  Sex: Male
  Weight: 82 kg

DRUGS (1)
  1. METOLAZONE (METOLAZONE 2.5MG TAB) [Suspect]
     Active Substance: METOLAZONE
     Indication: OEDEMA PERIPHERAL
     Route: 048
     Dates: start: 20200512, end: 20200518

REACTIONS (5)
  - Therapy cessation [None]
  - Rash pruritic [None]
  - Rash [None]
  - Hypersensitivity [None]
  - Peripheral swelling [None]

NARRATIVE: CASE EVENT DATE: 20200518
